FAERS Safety Report 5730810-X (Version None)
Quarter: 2008Q2

REPORT INFORMATION
  Report Type: 
  Country: None (occurrence: None)
  Receive Date: 20080502
  Receipt Date: 20080422
  Transmission Date: 20081010
  Serious: Yes (Hospitalization)
  Sender: FDA-Public Use
  Company Number: 2008BI010481

PATIENT
  Sex: Female
  Weight: 81.6475 kg

DRUGS (1)
  1. AVONEX [Suspect]
     Indication: MULTIPLE SCLEROSIS
     Dosage: 30 UG;QW;IM
     Route: 030
     Dates: end: 20080301

REACTIONS (5)
  - ASTHENIA [None]
  - DIZZINESS [None]
  - DYSURIA [None]
  - FALL [None]
  - MULTIPLE SCLEROSIS RELAPSE [None]
